FAERS Safety Report 19967642 (Version 2)
Quarter: 2022Q1

REPORT INFORMATION
  Report Type: Spontaneous
  Country: GB (occurrence: GB)
  Receive Date: 20211019
  Receipt Date: 20220222
  Transmission Date: 20220423
  Serious: Yes (Hospitalization, Other)
  Sender: FDA-Public Use
  Company Number: None

PATIENT
  Age: 36 Year
  Sex: Male
  Weight: 84 kg

DRUGS (3)
  1. IBUPROFEN [Suspect]
     Active Substance: IBUPROFEN
     Indication: Product used for unknown indication
     Dosage: UNK UNK, BID
     Route: 065
     Dates: start: 20210812, end: 20210817
  2. COLCHICINE [Suspect]
     Active Substance: COLCHICINE
     Indication: Pericarditis
     Dosage: 0.5 MILLIGRAM, BID
     Route: 065
     Dates: start: 20210906
  3. PFIZER-BIONTECH COVID-19 VACCINE [Suspect]
     Active Substance: TOZINAMERAN
     Indication: COVID-19 immunisation
     Dosage: DOSE 1
     Route: 065
     Dates: start: 20210525, end: 20210525

REACTIONS (5)
  - Burning sensation [Recovering/Resolving]
  - Pericarditis [Recovering/Resolving]
  - Chest pain [Recovered/Resolved]
  - Drug ineffective [Unknown]
  - Cardiac discomfort [Recovering/Resolving]

NARRATIVE: CASE EVENT DATE: 20210607
